FAERS Safety Report 9677581 (Version 1)
Quarter: 2013Q4

REPORT INFORMATION
  Report Type: Spontaneous
  Country: US (occurrence: US)
  Receive Date: 20131108
  Receipt Date: 20131108
  Transmission Date: 20140711
  Serious: No
  Sender: FDA-Public Use
  Company Number: US-PFIZER INC-2013316645

PATIENT
  Age: 73 Year
  Sex: Female

DRUGS (15)
  1. LYRICA [Suspect]
     Dosage: UNK
  2. LIPITOR [Suspect]
     Dosage: UNK
  3. VERAPAMIL HCL [Suspect]
     Dosage: UNK
  4. CRESTOR [Suspect]
     Dosage: UNK
  5. DILTIAZEM [Suspect]
     Dosage: UNK
  6. DIOVAN [Suspect]
     Dosage: UNK
  7. LISINOPRIL [Suspect]
     Dosage: UNK
  8. LOVASTATIN [Suspect]
     Dosage: UNK
  9. MICARDIS [Suspect]
     Dosage: UNK
  10. RYTHMOL [Suspect]
     Dosage: UNK
  11. TOPROL XL [Suspect]
     Dosage: UNK
  12. VYTORIN 10-10 [Suspect]
     Dosage: UNK
  13. ZETIA [Suspect]
     Dosage: UNK
  14. ZOCOR [Suspect]
     Dosage: UNK
  15. RED YEAST RICE [Suspect]
     Dosage: UNK

REACTIONS (1)
  - Drug hypersensitivity [Unknown]
